FAERS Safety Report 25535027 (Version 1)
Quarter: 2025Q3

REPORT INFORMATION
  Report Type: Report from Study
  Country: EG (occurrence: EG)
  Receive Date: 20250709
  Receipt Date: 20250709
  Transmission Date: 20251021
  Serious: Yes (Other)
  Sender: ABBVIE
  Company Number: EG-ABBVIE-5826478

PATIENT
  Age: 41 Year
  Sex: Female

DRUGS (3)
  1. HUMIRA [Suspect]
     Active Substance: ADALIMUMAB
     Indication: Rheumatoid arthritis
     Dosage: FORM STRENGTH 40 MILLIGRAMS,
     Route: 058
     Dates: start: 20231005
  2. HUMIRA [Suspect]
     Active Substance: ADALIMUMAB
     Dosage: FORM STRENGTH 40 MILLIGRAMS
     Route: 058
     Dates: start: 202406
  3. HUMIRA [Suspect]
     Active Substance: ADALIMUMAB
     Dosage: FORM STRENGTH 40 MILLIGRAMS, DURATION TEXT: FOR A MONTH OR TWO
     Route: 058
     Dates: end: 202406

REACTIONS (4)
  - Abortion spontaneous [Unknown]
  - Alpha tumour necrosis factor increased [Not Recovered/Not Resolved]
  - Maternal exposure during pregnancy [Unknown]
  - Alpha tumour necrosis factor increased [Recovered/Resolved]

NARRATIVE: CASE EVENT DATE: 20240630
